FAERS Safety Report 15373180 (Version 6)
Quarter: 2022Q1

REPORT INFORMATION
  Report Type: Spontaneous
  Country: CA (occurrence: None)
  Receive Date: 20180912
  Receipt Date: 20220301
  Transmission Date: 20220423
  Serious: Yes (Other)
  Sender: FDA-Public Use
  Company Number: CA-ROCHE-2181099

PATIENT
  Age: 49 Year
  Sex: Female

DRUGS (24)
  1. CAPECITABINE [Suspect]
     Active Substance: CAPECITABINE
     Indication: Breast cancer
     Route: 065
  2. CAPECITABINE [Suspect]
     Active Substance: CAPECITABINE
     Route: 065
  3. CLODRONATE DISODIUM [Suspect]
     Active Substance: CLODRONATE DISODIUM
     Indication: Breast cancer
     Route: 065
  4. ERIBULIN MESYLATE [Suspect]
     Active Substance: ERIBULIN MESYLATE
     Indication: Breast cancer
     Route: 065
  5. FULVESTRANT [Suspect]
     Active Substance: FULVESTRANT
     Indication: Breast cancer
     Route: 005
  6. FULVESTRANT [Suspect]
     Active Substance: FULVESTRANT
     Route: 030
  7. FULVESTRANT [Suspect]
     Active Substance: FULVESTRANT
     Route: 065
  8. LETROZOLE [Suspect]
     Active Substance: LETROZOLE
     Indication: Breast cancer
     Route: 065
  9. LETROZOLE [Suspect]
     Active Substance: LETROZOLE
     Route: 065
  10. LETROZOLE [Suspect]
     Active Substance: LETROZOLE
     Route: 065
  11. PACLITAXEL [Suspect]
     Active Substance: PACLITAXEL
     Indication: Breast cancer
     Route: 042
  12. PALBOCICLIB [Suspect]
     Active Substance: PALBOCICLIB
     Indication: Breast cancer
     Route: 065
  13. TAMOXIFEN [Suspect]
     Active Substance: TAMOXIFEN
     Indication: Breast cancer
     Route: 048
  14. TAMOXIFEN [Suspect]
     Active Substance: TAMOXIFEN
     Route: 065
  15. CLODRONIC ACID [Suspect]
     Active Substance: CLODRONIC ACID
     Indication: Breast cancer
     Route: 065
  16. XELODA [Suspect]
     Active Substance: CAPECITABINE
     Indication: Breast cancer
     Route: 065
  17. CLODRONATE DISODIUM [Suspect]
     Active Substance: CLODRONATE DISODIUM
     Indication: Breast cancer
     Route: 065
  18. HALAVEN [Suspect]
     Active Substance: ERIBULIN MESYLATE
     Indication: Breast cancer
     Route: 065
  19. ERIBULIN [Suspect]
     Active Substance: ERIBULIN
     Indication: Breast cancer
     Route: 065
  20. TAMOXIFEN [Suspect]
     Active Substance: TAMOXIFEN
     Indication: Breast cancer
     Route: 065
  21. LETROZOLE [Suspect]
     Active Substance: LETROZOLE
     Indication: Breast cancer
     Route: 065
  22. IBRANCE [Suspect]
     Active Substance: PALBOCICLIB
     Indication: Breast cancer
     Route: 065
  23. PALBOCICLIB ISETHIONATE [Suspect]
     Active Substance: PALBOCICLIB ISETHIONATE
     Indication: Breast cancer
     Route: 065
  24. TAMOXIFEN CITRATE [Suspect]
     Active Substance: TAMOXIFEN CITRATE
     Indication: Breast cancer
     Route: 048

REACTIONS (13)
  - Asthenia [Unknown]
  - Breast cancer [Unknown]
  - Headache [Unknown]
  - Immunosuppression [Unknown]
  - Malignant neoplasm progression [Unknown]
  - Meningoencephalitis herpetic [Unknown]
  - Metastases to central nervous system [Unknown]
  - Metastases to eye [Unknown]
  - Metastases to liver [Unknown]
  - Platelet count decreased [Unknown]
  - Protein total increased [Unknown]
  - Herpes simplex encephalitis [Unknown]
  - White blood cell count increased [Unknown]
